FAERS Safety Report 4966751-5 (Version None)
Quarter: 2006Q2

REPORT INFORMATION
  Report Type: 
  Country: None (occurrence: None)
  Receive Date: 20060407
  Receipt Date: 20051004
  Transmission Date: 20061013
  Serious: Yes (Hospitalization)
  Sender: FDA-Public Use
  Company Number: US-MERCK-0510USA03474

PATIENT
  Age: 75 Year
  Sex: Female
  Weight: 57 kg

DRUGS (1)
  1. VIOXX [Suspect]
     Indication: ARTHRALGIA
     Route: 048
     Dates: start: 20010101, end: 20010101

REACTIONS (5)
  - BACK PAIN [None]
  - BLADDER REPAIR [None]
  - CEREBRAL DISORDER [None]
  - CEREBRAL THROMBOSIS [None]
  - HYPONATRAEMIA [None]
